FAERS Safety Report 16255918 (Version 1)
Quarter: 2019Q2

REPORT INFORMATION
  Report Type: Spontaneous
  Country: US (occurrence: US)
  Receive Date: 20190326
  Receipt Date: 20190326
  Transmission Date: 20190711
  Serious: No
  Sender: FDA-Public Use
  Company Number: None

PATIENT
  Age: 71 Year
  Sex: Male

DRUGS (1)
  1. BRIMONIDINE [Suspect]
     Active Substance: BRIMONIDINE TARTRATE
     Indication: GLAUCOMA
     Dosage: ?          OTHER DOSE:0.15 MEQ;?
     Route: 047

REACTIONS (3)
  - Product substitution issue [None]
  - Reaction to preservatives [None]
  - Eye pruritus [None]

NARRATIVE: CASE EVENT DATE: 20190124
